FAERS Safety Report 18727646 (Version 7)
Quarter: 2021Q3

REPORT INFORMATION
  Report Type: Report from Study
  Country: MX (occurrence: MX)
  Receive Date: 20210111
  Receipt Date: 20210729
  Transmission Date: 20211014
  Serious: Yes (Hospitalization, Other)
  Sender: FDA-Public Use
  Company Number: MX-TAKEDA-2021TUS000970

PATIENT
  Age: 36 Year
  Sex: Male

DRUGS (4)
  1. MESALAZINE [Suspect]
     Active Substance: MESALAMINE
     Indication: PRODUCT USED FOR UNKNOWN INDICATION
     Dosage: 1 GRAM, QID
     Route: 065
  2. MAGNESIUM [Concomitant]
     Active Substance: MAGNESIUM
     Indication: HYPOVITAMINOSIS
     Dosage: UNK
  3. SELENIUM + ZINC [Concomitant]
     Indication: HYPOVITAMINOSIS
     Dosage: UNK
  4. VEDOLIZUMAB [Suspect]
     Active Substance: VEDOLIZUMAB
     Indication: COLITIS ULCERATIVE
     Dosage: 300 MILLIGRAM
     Route: 042
     Dates: start: 20201231

REACTIONS (15)
  - Fatigue [Unknown]
  - Myalgia [Recovering/Resolving]
  - Skin burning sensation [Not Recovered/Not Resolved]
  - Headache [Recovered/Resolved]
  - Rectal tenesmus [Not Recovered/Not Resolved]
  - Pain [Recovered/Resolved]
  - Therapeutic reaction time decreased [Unknown]
  - Malaise [Recovered/Resolved]
  - Nausea [Recovered/Resolved]
  - Inguinal hernia perforation [Recovering/Resolving]
  - Bone pain [Recovering/Resolving]
  - Pyrexia [Recovered/Resolved]
  - Migraine [Not Recovered/Not Resolved]
  - Incarcerated inguinal hernia [Recovering/Resolving]
  - COVID-19 [Recovering/Resolving]

NARRATIVE: CASE EVENT DATE: 20210325
